FAERS Safety Report 6289883-0 (Version None)
Quarter: 2009Q3

REPORT INFORMATION
  Report Type: 
  Country: None (occurrence: None)
  Receive Date: 20090730
  Receipt Date: 20080903
  Transmission Date: 20100115
  Serious: No
  Sender: FDA-Public Use
  Company Number: US-BRISTOL-MYERS SQUIBB COMPANY-14324214

PATIENT

DRUGS (1)
  1. COUMADIN [Suspect]

REACTIONS (2)
  - HYPOAESTHESIA [None]
  - PARAESTHESIA [None]
